FAERS Safety Report 8844406 (Version 1)
Quarter: 2012Q4

REPORT INFORMATION
  Report Type: 
  Country: US (occurrence: US)
  Receive Date: 20121017
  Receipt Date: 20121017
  Transmission Date: 20130627
  Serious: No
  Sender: FDA-Public Use
  Company Number: US-PFIZER INC-2012257741

PATIENT
  Age: 36 Year
  Sex: Male
  Weight: 100 kg

DRUGS (3)
  1. ADVIL [Suspect]
     Indication: HEADACHE
     Dosage: UNK
     Dates: start: 201210
  2. IBUPROFEN [Suspect]
     Indication: HEADACHE
     Dosage: UNK
     Dates: start: 201210
  3. TYLENOL [Suspect]
     Indication: HEADACHE
     Dosage: UNK
     Dates: start: 201210

REACTIONS (1)
  - Drug ineffective [Unknown]
